FAERS Safety Report 4607149-9 (Version None)
Quarter: 2005Q1

REPORT INFORMATION
  Report Type: 
  Country: None (occurrence: None)
  Receive Date: 20050309
  Receipt Date: 20050221
  Transmission Date: 20050727
  Serious: Yes (Other)
  Sender: FDA-Public Use
  Company Number: USA031050599

PATIENT
  Age: 75 Year
  Sex: Female

DRUGS (6)
  1. FORTEO [Suspect]
     Indication: OSTEOPOROSIS
     Dosage: 20 UG DAY
     Dates: start: 20030601
  2. EVISTA [Concomitant]
  3. LIPITOR [Concomitant]
  4. SYNTHROID [Concomitant]
  5. VIOXX [Concomitant]
  6. CALCIUM GLUCONATE [Concomitant]

REACTIONS (6)
  - CATARACT [None]
  - CONDITION AGGRAVATED [None]
  - GLAUCOMA [None]
  - INTRAOCULAR PRESSURE INCREASED [None]
  - PHARMACEUTICAL PRODUCT COMPLAINT [None]
  - VISUAL DISTURBANCE [None]
